FAERS Safety Report 9205968 (Version 1)
Quarter: 2013Q1

REPORT INFORMATION
  Report Type: Spontaneous
  Country: US (occurrence: None)
  Receive Date: 20120731
  Receipt Date: 20120731
  Transmission Date: 20140127
  Serious: Yes (Hospitalization)
  Sender: FDA-Public Use
  Company Number: PHEH2011US02746

PATIENT
  Age: 69 Year
  Sex: Female

DRUGS (5)
  1. FORADIL [Suspect]
     Indication: CHRONIC OBSTRUCTIVE PULMONARY DISEASE
     Route: 055
     Dates: start: 20110812
  2. FORADIL [Suspect]
     Indication: EMPHYSEMA
     Route: 055
     Dates: start: 20110812
  3. FORADIL [Suspect]
     Route: 055
     Dates: start: 20110812
  4. SYNTHROID (LEVOTHYROXINE SODIUM) [Concomitant]
  5. QVAR (BECLOMETASONE DIPROPIONATE) [Concomitant]

REACTIONS (1)
  - Blood pressure systolic increased [None]
